FAERS Safety Report 19695886 (Version 1)
Quarter: 2021Q3

REPORT INFORMATION
  Report Type: Spontaneous
  Country: US (occurrence: US)
  Receive Date: 20210812
  Receipt Date: 20210812
  Transmission Date: 20211014
  Serious: Yes (Hospitalization)
  Sender: FDA-Public Use
  Company Number: None

PATIENT
  Age: 68 Year
  Sex: Male

DRUGS (10)
  1. METFORMIN [Concomitant]
     Active Substance: METFORMIN HYDROCHLORIDE
  2. ACYCLOVIR. [Concomitant]
     Active Substance: ACYCLOVIR
  3. AMLODIPINE [Concomitant]
     Active Substance: AMLODIPINE BESYLATE
  4. ALPRAZOLAM. [Concomitant]
     Active Substance: ALPRAZOLAM
  5. LOSARTAN/HCT [Concomitant]
     Active Substance: HYDROCHLOROTHIAZIDE\LOSARTAN POTASSIUM
  6. NIVESTYM [Suspect]
     Active Substance: FILGRASTIM-AAFI
     Indication: PLASMA CELL MYELOMA
     Dosage: ?          OTHER DOSE:4 SYR;OTHER FREQUENCY:QPM;?
     Route: 058
     Dates: start: 20210716
  7. OMEPRAZOLE. [Concomitant]
     Active Substance: OMEPRAZOLE
  8. DEXAMETHASONE. [Concomitant]
     Active Substance: DEXAMETHASONE
  9. ELIQUIS [Concomitant]
     Active Substance: APIXABAN
  10. TESTOST CYP [Concomitant]
     Active Substance: TESTOSTERONE CYPIONATE

REACTIONS (2)
  - Illness [None]
  - Therapy interrupted [None]

NARRATIVE: CASE EVENT DATE: 20210812
